FAERS Safety Report 13550661 (Version 5)
Quarter: 2018Q2

REPORT INFORMATION
  Report Type: Spontaneous
  Country: US (occurrence: US)
  Receive Date: 20170516
  Receipt Date: 20180425
  Transmission Date: 20180711
  Serious: Yes (Hospitalization, Disabling, Other)
  Sender: FDA-Public Use
  Company Number: US-009507513-1705USA006347

PATIENT
  Sex: Female

DRUGS (4)
  1. FOSAMAX [Suspect]
     Active Substance: ALENDRONATE SODIUM
     Indication: OSTEOPOROSIS
     Dosage: 70 MG, QW
     Route: 048
     Dates: end: 200801
  2. FOSAMAX PLUS D [Suspect]
     Active Substance: ALENDRONATE SODIUM\CHOLECALCIFEROL
     Indication: OSTEOPOROSIS
     Dosage: UNK
     Route: 048
  3. VITAMINS (UNSPECIFIED) [Concomitant]
     Active Substance: VITAMINS
     Dosage: UNK
     Route: 048
     Dates: start: 1995
  4. FOSAMAX [Suspect]
     Active Substance: ALENDRONATE SODIUM
     Indication: OSTEOPOROSIS PROPHYLAXIS
     Dosage: UNK UNK, QW
     Route: 048
     Dates: start: 1995

REACTIONS (32)
  - Limb injury [Unknown]
  - Stress urinary incontinence [Unknown]
  - Synovial cyst [Recovered/Resolved]
  - Bone disorder [Unknown]
  - Polyp [Unknown]
  - Inguinal hernia [Unknown]
  - Femur fracture [Unknown]
  - Fall [Unknown]
  - Depression [Unknown]
  - Blood potassium increased [Unknown]
  - Bladder prolapse [Unknown]
  - Atrophic vulvovaginitis [Unknown]
  - Allergy to vaccine [Unknown]
  - Arthropathy [Unknown]
  - Haemorrhagic anaemia [Unknown]
  - Lipid metabolism disorder [Unknown]
  - Drug hypersensitivity [Unknown]
  - Hypothyroidism [Unknown]
  - Blood calcium increased [Unknown]
  - Thrombocytosis [Unknown]
  - Femur fracture [Unknown]
  - Emotional distress [Unknown]
  - Depression [Unknown]
  - Essential thrombocythaemia [Unknown]
  - Hyperlipidaemia [Unknown]
  - Upper limb fracture [Unknown]
  - Fat tissue increased [Unknown]
  - Spinal osteoarthritis [Unknown]
  - Osteoarthritis [Unknown]
  - Essential hypertension [Unknown]
  - Gastrooesophageal reflux disease [Unknown]
  - Anaemia postoperative [Unknown]

NARRATIVE: CASE EVENT DATE: 200212
